FAERS Safety Report 23115915 (Version 1)
Quarter: 2023Q4

REPORT INFORMATION
  Report Type: Other
  Country: None (occurrence: AU)
  Receive Date: 20231027
  Receipt Date: 20231027
  Transmission Date: 20240109
  Serious: Yes (Death)
  Sender: FDA-Public Use
  Company Number: AU-Knight Therapeutics (USA) Inc.-2147531

PATIENT
  Age: 25 Year
  Sex: Female
  Weight: 64 kg

DRUGS (11)
  1. IMPAVIDO [Suspect]
     Active Substance: MILTEFOSINE
     Indication: Scedosporium infection
     Dates: start: 20160414
  2. VORICONAZOLE [Concomitant]
     Active Substance: VORICONAZOLE
     Dates: start: 20160415
  3. VORICONAZOLE [Concomitant]
     Active Substance: VORICONAZOLE
     Dates: start: 20160409
  4. VORICONAZOLE [Concomitant]
     Active Substance: VORICONAZOLE
     Dates: start: 20160320
  5. VORICONAZOLE [Concomitant]
     Active Substance: VORICONAZOLE
     Dates: start: 20160318
  6. VORICONAZOLE [Concomitant]
     Active Substance: VORICONAZOLE
     Dates: start: 20160209
  7. VORICONAZOLE [Concomitant]
     Active Substance: VORICONAZOLE
     Route: 042
     Dates: start: 20160112
  8. VORICONAZOLE [Concomitant]
     Active Substance: VORICONAZOLE
     Route: 042
     Dates: start: 20160111
  9. TERBINAFINE [Concomitant]
     Active Substance: TERBINAFINE
     Route: 048
     Dates: start: 20160111
  10. ANIDULAFUNGIN [Concomitant]
     Active Substance: ANIDULAFUNGIN
     Route: 042
     Dates: start: 20160112
  11. ANIDULAFUNGIN [Concomitant]
     Active Substance: ANIDULAFUNGIN
     Route: 042
     Dates: start: 20160111

REACTIONS (5)
  - Drug ineffective for unapproved indication [Fatal]
  - Nausea [Unknown]
  - Off label use [None]
  - Therapy change [None]
  - Off label use [None]
